FAERS Safety Report 8811099 (Version 1)
Quarter: 2012Q4

REPORT INFORMATION
  Report Type: Spontaneous
  Country: DK (occurrence: None)
  Receive Date: 20120921
  Receipt Date: 20120921
  Transmission Date: 20130627
  Serious: Yes (Other)
  Sender: FDA-Public Use
  Company Number: 2012MA011436

PATIENT
  Sex: Male

DRUGS (3)
  1. DIAZEPAM [Suspect]
  2. LORAZEPAM [Suspect]
  3. ALPRAZOLAM [Suspect]

REACTIONS (3)
  - Syncope [None]
  - Vertigo [None]
  - Head injury [None]
